FAERS Safety Report 4542077-9 (Version None)
Quarter: 2004Q4

REPORT INFORMATION
  Report Type: 
  Country: None (occurrence: None)
  Receive Date: 20041227
  Receipt Date: 20041217
  Transmission Date: 20050328
  Serious: Yes (Other)
  Sender: FDA-Public Use
  Company Number: 2004115672

PATIENT
  Age: 91 Year
  Sex: Female

DRUGS (5)
  1. ZITHROMAX [Suspect]
     Indication: BRONCHOPNEUMONIA
     Dosage: (250 MG, 1 D), INTRAVENOUS
     Route: 042
     Dates: start: 20041213, end: 20041214
  2. LOMOTIL [Concomitant]
  3. ALL OTHER THERAPEUTIC PRODUCTS (ALL OTHER THERAPEUTIC PRODUCTS) [Concomitant]
  4. DIPHENHYDRAMINE HCL [Concomitant]
  5. TERBUTALINE SULFATE [Concomitant]

REACTIONS (1)
  - ACUTE PULMONARY OEDEMA [None]
